FAERS Safety Report 7291878-5 (Version None)
Quarter: 2011Q1

REPORT INFORMATION
  Report Type: 
  Country: None (occurrence: None)
  Receive Date: 20110214
  Receipt Date: 20110208
  Transmission Date: 20110831
  Serious: Yes (Hospitalization)
  Sender: FDA-Public Use
  Company Number: US-US-EMD SERONO, INC.-7039207

PATIENT
  Sex: Female
  Weight: 80 kg

DRUGS (4)
  1. REBIF [Suspect]
     Indication: MULTIPLE SCLEROSIS
     Route: 058
     Dates: start: 20100203, end: 20101101
  2. PROZAC [Concomitant]
     Indication: DEPRESSION
  3. UNSPECIFIED MEDICATIONS [TOO MANY TO LIST] [Concomitant]
  4. METFORMIN [Concomitant]

REACTIONS (8)
  - DIARRHOEA [None]
  - CHILLS [None]
  - NAUSEA [None]
  - BLOOD CHOLESTEROL INCREASED [None]
  - PYREXIA [None]
  - VOMITING [None]
  - MYOCARDIAL INFARCTION [None]
  - INFLUENZA LIKE ILLNESS [None]
